FAERS Safety Report 17574861 (Version 2)
Quarter: 2020Q2

REPORT INFORMATION
  Report Type: Report from Study
  Country: DE (occurrence: DE)
  Receive Date: 20200324
  Receipt Date: 20200502
  Transmission Date: 20200713
  Serious: Yes (Hospitalization, Other)
  Sender: FDA-Public Use
  Company Number: DE-ROCHE-2393556

PATIENT
  Age: 43 Year
  Sex: Female

DRUGS (4)
  1. CARBAMAZEPIN [Concomitant]
     Active Substance: CARBAMAZEPINE
  2. TORASEMIDE [Concomitant]
     Active Substance: TORSEMIDE
  3. OCREVUS [Suspect]
     Active Substance: OCRELIZUMAB
     Indication: RELAPSING-REMITTING MULTIPLE SCLEROSIS
     Route: 042
     Dates: start: 20190401
  4. OCREVUS [Suspect]
     Active Substance: OCRELIZUMAB
     Route: 042
     Dates: start: 20190916

REACTIONS (11)
  - Sepsis [Recovered/Resolved]
  - Fall [Unknown]
  - Infection [Recovered/Resolved]
  - Muscular weakness [Not Recovered/Not Resolved]
  - Lymphocyte count decreased [Not Recovered/Not Resolved]
  - Limb injury [Not Recovered/Not Resolved]
  - Tendon rupture [Not Recovered/Not Resolved]
  - Oropharyngeal pain [Recovered/Resolved]
  - Fluid retention [Recovering/Resolving]
  - Nasal congestion [Recovered/Resolved]
  - Rhinorrhoea [Recovered/Resolved]

NARRATIVE: CASE EVENT DATE: 20190401
